FAERS Safety Report 25141187 (Version 2)
Quarter: 2025Q2

REPORT INFORMATION
  Report Type: Spontaneous
  Country: CL (occurrence: CL)
  Receive Date: 20250331
  Receipt Date: 20250407
  Transmission Date: 20250716
  Serious: Yes (Disabling)
  Sender: BIOMARIN
  Company Number: CL-BIOMARINAP-CL-2025-164902

PATIENT

DRUGS (2)
  1. VIMIZIM [Suspect]
     Active Substance: ELOSULFASE ALFA
     Indication: Mucopolysaccharidosis IV
     Route: 042
     Dates: start: 20170501
  2. DESLORATADINE [Concomitant]
     Active Substance: DESLORATADINE
     Indication: Snoring

REACTIONS (3)
  - Motor dysfunction [Not Recovered/Not Resolved]
  - Attention deficit hyperactivity disorder [Not Recovered/Not Resolved]
  - Cognitive disorder [Not Recovered/Not Resolved]

NARRATIVE: CASE EVENT DATE: 20241218
